FAERS Safety Report 10340748 (Version 1)
Quarter: 2014Q3

REPORT INFORMATION
  Report Type: Spontaneous
  Country: US (occurrence: US)
  Receive Date: 20140724
  Receipt Date: 20140724
  Transmission Date: 20150326
  Serious: Yes (Other)
  Sender: FDA-Public Use
  Company Number: US-MYLANLABS-2014S1017303

PATIENT
  Age: 42 Year
  Sex: Male

DRUGS (4)
  1. ILOPERIDONE [Suspect]
     Active Substance: ILOPERIDONE
     Indication: BIPOLAR I DISORDER
     Dosage: 6MG DAILY
     Route: 065
  2. PAROXETINE [Concomitant]
     Active Substance: PAROXETINE\PAROXETINE HYDROCHLORIDE
     Indication: BIPOLAR I DISORDER
     Dosage: 40MG
     Route: 065
  3. PAROXETINE [Concomitant]
     Active Substance: PAROXETINE\PAROXETINE HYDROCHLORIDE
     Indication: BIPOLAR I DISORDER
     Dosage: 80MG/DAY, THEN LOWERED TO 40MG
     Route: 065
  4. LITHIUM [Suspect]
     Active Substance: LITHIUM CARBONATE
     Indication: BIPOLAR I DISORDER
     Dosage: 1500MG
     Route: 065

REACTIONS (1)
  - Priapism [Recovering/Resolving]
